FAERS Safety Report 22320395 (Version 1)
Quarter: 2023Q2

REPORT INFORMATION
  Report Type: Spontaneous
  Country: FR (occurrence: FR)
  Receive Date: 20230515
  Receipt Date: 20230515
  Transmission Date: 20230721
  Serious: Yes (Life-Threatening)
  Sender: FDA-Public Use
  Company Number: None

PATIENT
  Age: 68 Year
  Sex: Male
  Weight: 95 kg

DRUGS (2)
  1. VERAPAMIL HYDROCHLORIDE [Suspect]
     Active Substance: VERAPAMIL HYDROCHLORIDE
     Indication: Diagnostic procedure
     Dosage: 5 MILLIGRAM
     Route: 013
     Dates: start: 20230224, end: 20230224
  2. ADENOSINE [Suspect]
     Active Substance: ADENOSINE
     Indication: Diagnostic procedure
     Dosage: 240 MICROGRAM
     Route: 022
     Dates: start: 20230224, end: 20230224

REACTIONS (2)
  - Cardio-respiratory arrest [Recovered/Resolved]
  - Ventricular fibrillation [Recovered/Resolved]

NARRATIVE: CASE EVENT DATE: 20230224
